FAERS Safety Report 9521747 (Version 1)
Quarter: 2013Q3

REPORT INFORMATION
  Report Type: Spontaneous
  Country: TN (occurrence: TN)
  Receive Date: 20130913
  Receipt Date: 20130913
  Transmission Date: 20140515
  Serious: Yes (Death, Other)
  Sender: FDA-Public Use
  Company Number: PHHY2013TN101290

PATIENT
  Age: 26 Year
  Sex: Male

DRUGS (2)
  1. TASIGNA [Suspect]
     Indication: CHRONIC MYELOID LEUKAEMIA
     Dosage: 800 MG, PER DAY
     Route: 048
     Dates: start: 20130515, end: 20130601
  2. CHEMOTHERAPEUTICS [Concomitant]

REACTIONS (5)
  - Death [Fatal]
  - Anaemia [Unknown]
  - Blast crisis in myelogenous leukaemia [Unknown]
  - Monocytosis [Unknown]
  - Thrombophlebitis [Unknown]
